FAERS Safety Report 7705470-9 (Version None)
Quarter: 2011Q3

REPORT INFORMATION
  Report Type: 
  Country: None (occurrence: None)
  Receive Date: 20110818
  Receipt Date: 20110808
  Transmission Date: 20111222
  Serious: Yes (Life-Threatening, Hospitalization, Other)
  Sender: FDA-Public Use
  Company Number: AUR-APL-2011-04611

PATIENT
  Age: 82 Year
  Sex: Female

DRUGS (7)
  1. LANTUS [Suspect]
     Indication: TYPE 2 DIABETES MELLITUS
     Dosage: (30 IU)
  2. SAXAGLIPTIN (SAXAGLIPTIN) [Suspect]
     Indication: TYPE 2 DIABETES MELLITUS
     Dates: start: 20100824
  3. METFORMIN HCL [Suspect]
     Indication: TYPE 2 DIABETES MELLITUS
     Dosage: (2000 MG)
  4. PLACEBO [Suspect]
     Indication: TYPE 2 DIABETES MELLITUS
     Dates: start: 20100824
  5. LISINOPRIL AND HYDROCHLOROTHIAZIDE [Suspect]
     Indication: PRODUCT USED FOR UNKNOWN INDICATION
  6. CELEBREX [Suspect]
     Indication: PRODUCT USED FOR UNKNOWN INDICATION
  7. ASPIRIN [Concomitant]

REACTIONS (9)
  - BRAIN NATRIURETIC PEPTIDE INCREASED [None]
  - FLUID OVERLOAD [None]
  - PULMONARY CONGESTION [None]
  - DIABETES MELLITUS INADEQUATE CONTROL [None]
  - ESCHERICHIA TEST POSITIVE [None]
  - DEHYDRATION [None]
  - UROSEPSIS [None]
  - RENAL FAILURE ACUTE [None]
  - SYNCOPE [None]
